FAERS Safety Report 4971446-8 (Version None)
Quarter: 2006Q2

REPORT INFORMATION
  Report Type: 
  Country: None (occurrence: None)
  Receive Date: 20060413
  Receipt Date: 20060216
  Transmission Date: 20061013
  Serious: Yes (Other)
  Sender: FDA-Public Use
  Company Number: 2006UW02901

PATIENT
  Age: 17323 Day
  Sex: Male
  Weight: 75.2 kg

DRUGS (9)
  1. IRESSA [Suspect]
     Indication: NON-SMALL CELL LUNG CANCER
     Route: 048
     Dates: start: 20060126, end: 20060215
  2. PROCHLORPERAZINE [Concomitant]
     Indication: NAUSEA
     Route: 048
     Dates: start: 20060126
  3. PROCHLORPERAZINE [Concomitant]
     Indication: VOMITING
     Route: 048
     Dates: start: 20060126
  4. TYLENOL W/ CODEINE NO. 3 [Concomitant]
     Indication: PAIN
     Dosage: 1-2 TABLETS PO PRN
     Route: 048
     Dates: start: 20051214
  5. HYCODAN [Concomitant]
     Indication: COUGH
     Route: 048
     Dates: start: 20051214
  6. ADALAT [Concomitant]
     Indication: HYPERTENSION
     Dates: start: 20051123
  7. MAALOX FAST BLOCKER [Concomitant]
     Route: 048
     Dates: start: 20050601
  8. TAXOL [Concomitant]
     Dates: start: 20050501
  9. CARBOPLATIN [Concomitant]
     Dates: start: 20050501

REACTIONS (1)
  - THROMBOCYTOPENIA [None]
